FAERS Safety Report 5041169-8 (Version None)
Quarter: 2006Q3

REPORT INFORMATION
  Report Type: 
  Country: None (occurrence: None)
  Receive Date: 20060703
  Receipt Date: 20060619
  Transmission Date: 20061208
  Serious: Yes (Death, Hospitalization)
  Sender: FDA-Public Use
  Company Number: BE-GILEAD-2006-0009789

PATIENT
  Sex: Male
  Weight: 66 kg

DRUGS (15)
  1. TENOFOVIR DISOPROXIL FUMARATE [Suspect]
     Indication: HIV INFECTION
     Route: 048
     Dates: start: 20060404, end: 20060511
  2. TMC114 [Suspect]
     Indication: HIV INFECTION
     Route: 048
     Dates: start: 20060404, end: 20060511
  3. RITONAVIR [Suspect]
     Indication: HIV INFECTION
     Route: 048
     Dates: start: 20060404, end: 20060511
  4. EUSAPRIM FORTE [Suspect]
  5. ENFUVIRTIDE [Concomitant]
     Indication: HIV INFECTION
     Route: 058
     Dates: start: 20060404, end: 20060511
  6. COMBIVIR [Concomitant]
     Indication: HIV INFECTION
     Route: 048
     Dates: start: 20060404, end: 20060511
  7. ATAZANAVIR [Concomitant]
     Indication: HIV INFECTION
     Route: 048
     Dates: start: 20060404, end: 20060511
  8. DAKTARIN [Concomitant]
     Route: 048
  9. INSULACTRAPID [Concomitant]
  10. INSULATARD NPH HUMAN [Concomitant]
  11. CORUNO RETARD [Concomitant]
     Route: 048
  12. COVERSYL [Concomitant]
     Route: 048
  13. DUOVENT [Concomitant]
     Route: 055
  14. SERETIDE [Concomitant]
     Route: 055
  15. TEARS NATURALE [Concomitant]
     Route: 047

REACTIONS (29)
  - ABDOMINAL PAIN [None]
  - ABDOMINAL PAIN LOWER [None]
  - ANOREXIA [None]
  - BACTERAEMIA [None]
  - CARDIOMEGALY [None]
  - DEHYDRATION [None]
  - DIABETES MELLITUS INADEQUATE CONTROL [None]
  - DIABETIC NEUROPATHY [None]
  - DIARRHOEA [None]
  - ENCEPHALOPATHY [None]
  - GENERAL PHYSICAL HEALTH DETERIORATION [None]
  - HAEMATURIA [None]
  - HYPERCALCAEMIA [None]
  - HYPOTENSION [None]
  - HYPOVOLAEMIA [None]
  - INCORRECT DOSE ADMINISTERED [None]
  - LIVER FUNCTION TEST ABNORMAL [None]
  - METABOLIC ACIDOSIS [None]
  - NEPHRITIS INTERSTITIAL [None]
  - ORAL CANDIDIASIS [None]
  - ORAL PAIN [None]
  - PYREXIA [None]
  - RENAL FAILURE ACUTE [None]
  - RENAL IMPAIRMENT [None]
  - RENAL TUBULAR NECROSIS [None]
  - SEPSIS [None]
  - URINARY TRACT INFECTION [None]
  - URINARY TRACT INFECTION BACTERIAL [None]
  - URINE FLOW DECREASED [None]
